FAERS Safety Report 11167624 (Version 1)
Quarter: 2015Q2

REPORT INFORMATION
  Report Type: Spontaneous
  Country: BR (occurrence: BR)
  Receive Date: 20150605
  Receipt Date: 20150605
  Transmission Date: 20150821
  Serious: Yes (Death, Other)
  Sender: FDA-Public Use
  Company Number: BR-PFIZER INC-2015029159

PATIENT
  Age: 57 Year
  Sex: Female
  Weight: 62 kg

DRUGS (19)
  1. ZOFRAN [Concomitant]
     Active Substance: ONDANSETRON HYDROCHLORIDE
     Indication: PREMEDICATION
     Dosage: 8 MG, CYCLIC
     Route: 042
  2. EMEND [Concomitant]
     Active Substance: APREPITANT
     Indication: PREMEDICATION
     Dosage: 150 MG, CYCLIC
     Route: 042
  3. KYTRIL [Concomitant]
     Active Substance: GRANISETRON HYDROCHLORIDE
     Indication: PREMEDICATION
     Dosage: 3 MG, UNK
     Route: 042
  4. ONICIT [Concomitant]
     Active Substance: PALONOSETRON HYDROCHLORIDE
     Indication: PREMEDICATION
  5. DEXAMETHASONE. [Concomitant]
     Active Substance: DEXAMETHASONE
     Indication: PREMEDICATION
     Dosage: 10 MG, CYCLIC
     Route: 042
  6. OXALIPLATIN. [Suspect]
     Active Substance: OXALIPLATIN
     Dosage: UNK
     Dates: start: 20150119, end: 20150119
  7. OXALIPLATIN. [Suspect]
     Active Substance: OXALIPLATIN
     Dosage: 4TH CYCLE
     Dates: start: 20150318, end: 20150318
  8. CAMPTOSAR [Suspect]
     Active Substance: IRINOTECAN HYDROCHLORIDE
     Indication: COLON CANCER
     Dosage: 297 MG, IN 2 HOURS
     Route: 042
  9. AVASTIN [Concomitant]
     Active Substance: BEVACIZUMAB
     Indication: COLON CANCER
     Dosage: 345 MG, CYCLIC
     Route: 042
  10. FOLINIC ACID [Concomitant]
     Active Substance: LEUCOVORIN
     Dosage: 720 MG, 4TH CYCLE
     Dates: start: 20150318, end: 20150318
  11. 5-FU /00098801/ [Concomitant]
     Active Substance: FLUOROURACIL
     Dosage: 4320 MG, FOR 46 HOURS
     Route: 042
     Dates: start: 2015
  12. CAMPTOSAR [Suspect]
     Active Substance: IRINOTECAN HYDROCHLORIDE
     Dosage: 297 MG, 4TH CYCLE
     Dates: start: 20150318, end: 20150318
  13. OXALIPLATIN. [Suspect]
     Active Substance: OXALIPLATIN
     Dosage: UNK
     Dates: start: 20150203, end: 20150203
  14. AVASTIN [Concomitant]
     Active Substance: BEVACIZUMAB
     Dosage: 4TH CYCLE
     Dates: start: 20150318, end: 20150318
  15. FOLINIC ACID [Concomitant]
     Active Substance: LEUCOVORIN
     Indication: COLON CANCER
     Dosage: 720 MG, 90 MINUTES
     Route: 042
  16. CAMPTOSAR [Suspect]
     Active Substance: IRINOTECAN HYDROCHLORIDE
     Dosage: UNK
     Dates: start: 20150119, end: 20150119
  17. ANTAK [Concomitant]
     Active Substance: RANITIDINE HYDROCHLORIDE
     Indication: PREMEDICATION
  18. OXALIPLATIN. [Suspect]
     Active Substance: OXALIPLATIN
     Indication: COLON CANCER
     Dosage: 153 MG, (2 HOURS)
     Route: 042
  19. ATROPINE [Concomitant]
     Active Substance: ATROPINE
     Indication: PAIN
     Dosage: 0.25 MG, CYCLIC
     Route: 058

REACTIONS (7)
  - Death [Fatal]
  - Nausea [Recovered/Resolved]
  - Jaw disorder [Recovered/Resolved]
  - Tongue disorder [Recovered/Resolved]
  - Tongue oedema [Unknown]
  - Flushing [Unknown]
  - Speech disorder [Recovered/Resolved]

NARRATIVE: CASE EVENT DATE: 20150119
